FAERS Safety Report 5115428-4 (Version None)
Quarter: 2006Q3

REPORT INFORMATION
  Report Type: 
  Country: None (occurrence: None)
  Receive Date: 20060922
  Receipt Date: 20060906
  Transmission Date: 20061208
  Serious: Yes (Other)
  Sender: FDA-Public Use
  Company Number: 062-C5013-06090049

PATIENT
  Age: 75 Year
  Sex: Male
  Weight: 80 kg

DRUGS (6)
  1. REVLIMID [Suspect]
     Indication: MYELODYSPLASTIC SYNDROME
     Dosage: 10 MG, 1 IN 1 D, ORAL
     Route: 048
     Dates: start: 20060801, end: 20060809
  2. SYMBICORT (SYMBICORT TURBUHALER) [Concomitant]
  3. UNILAIR (THEOPHYLLINE) [Concomitant]
  4. UNAT 10 (TORASEMIDE) [Concomitant]
  5. DECORTIN (PREDNISONE) [Concomitant]
  6. AUGMENTIN '125' [Concomitant]

REACTIONS (5)
  - DYSPNOEA [None]
  - INSOMNIA [None]
  - NIGHT SWEATS [None]
  - OEDEMA PERIPHERAL [None]
  - WEIGHT INCREASED [None]
